FAERS Safety Report 10340908 (Version 2)
Quarter: 2014Q3

REPORT INFORMATION
  Report Type: Spontaneous
  Country: US (occurrence: US)
  Receive Date: 20140724
  Receipt Date: 20140724
  Transmission Date: 20150326
  Serious: No
  Sender: FDA-Public Use
  Company Number: US-MYLANLABS-2013S1015141

PATIENT
  Age: 56 Year
  Sex: Female
  Weight: 69.85 kg

DRUGS (1)
  1. LEVOTHYROXINE TABLETS [Suspect]
     Active Substance: LEVOTHYROXINE
     Indication: HYPOTHYROIDISM
     Route: 048
     Dates: start: 201306

REACTIONS (4)
  - Nausea [Recovering/Resolving]
  - Abdominal distension [Recovering/Resolving]
  - Fatigue [Recovering/Resolving]
  - Muscular weakness [Recovering/Resolving]

NARRATIVE: CASE EVENT DATE: 201306
